FAERS Safety Report 6785129-5 (Version None)
Quarter: 2010Q2

REPORT INFORMATION
  Report Type: 
  Country: None (occurrence: None)
  Receive Date: 20100618
  Receipt Date: 20100603
  Transmission Date: 20101027
  Serious: Yes (Hospitalization)
  Sender: FDA-Public Use
  Company Number: 2010001553

PATIENT
  Age: 77 Year
  Sex: Female
  Weight: 51 kg

DRUGS (12)
  1. ERLOTINIB (ERLOTINIB) (TABLET) (ERLOTINIB) [Suspect]
     Indication: LUNG ADENOCARCINOMA
     Dosage: 150 MG, QD, ORAL
     Route: 048
     Dates: start: 20090213, end: 20100116
  2. ALIMTA [Suspect]
     Indication: LUNG ADENOCARCINOMA
     Dosage: 660 MG, QD, INTRAVENOUS
     Route: 042
     Dates: start: 20100108, end: 20100108
  3. BAYMYCARD (NISOLIPINE) [Concomitant]
  4. MUCOSOLVAN (AMBROXOL HYDROCHLORIDE) [Concomitant]
  5. APLACE (TROXIPIDE) [Concomitant]
  6. SIGMART (NICORANDIL) [Concomitant]
  7. LENDORM [Concomitant]
  8. TS-1 [Concomitant]
  9. MECOBALAMIN (MECOBALAMIN) [Concomitant]
  10. PANVITAN (PANVITAN) [Concomitant]
  11. CONIEL (BENIDIPINE HYDROCHLORIDE) [Concomitant]
  12. LASIX [Concomitant]

REACTIONS (7)
  - ANAEMIA [None]
  - CONDITION AGGRAVATED [None]
  - ELECTROCARDIOGRAM ABNORMAL [None]
  - MALAISE [None]
  - MYOCARDITIS [None]
  - NEUTROPENIA [None]
  - RASH [None]
